FAERS Safety Report 6265521-8 (Version None)
Quarter: 2009Q3

REPORT INFORMATION
  Report Type: 
  Country: None (occurrence: None)
  Receive Date: 20090713
  Receipt Date: 20090701
  Transmission Date: 20100115
  Serious: Yes (Death, Hospitalization)
  Sender: FDA-Public Use
  Company Number: HU-PFIZER INC-2008101539

PATIENT
  Age: 58 Year

DRUGS (11)
  1. BLINDED *NO SUBJECT DRUG [Suspect]
     Indication: NON-SMALL CELL LUNG CANCER
     Dosage: 37.5 MG, 1X/DAY
     Route: 048
     Dates: start: 20081022, end: 20081125
  2. BLINDED *PLACEBO [Suspect]
     Indication: NON-SMALL CELL LUNG CANCER
     Dosage: 37.5 MG, 1X/DAY
     Route: 048
     Dates: start: 20081022, end: 20081125
  3. BLINDED SUNITINIB MALATE [Suspect]
     Indication: NON-SMALL CELL LUNG CANCER
     Dosage: 37.5 MG, 1X/DAY
     Route: 048
     Dates: start: 20081022, end: 20081125
  4. *ERLOTINIB [Suspect]
     Indication: NON-SMALL CELL LUNG CANCER
     Dosage: 150 MG, 1X/DAY
     Route: 048
     Dates: start: 20081022, end: 20081118
  5. *ERLOTINIB [Suspect]
     Dosage: 100 MG, 1X/DAY
     Route: 048
     Dates: start: 20081119, end: 20081125
  6. FAMOTIDINE [Concomitant]
     Route: 048
     Dates: start: 20060101, end: 20081125
  7. METOPROLOL TARTRATE [Concomitant]
     Route: 048
     Dates: start: 20060101, end: 20081125
  8. TRAMADOL [Concomitant]
     Route: 048
     Dates: start: 20080930, end: 20081125
  9. MORPHINE [Concomitant]
     Route: 030
     Dates: start: 20081112, end: 20081125
  10. DISODIUM CLODRONATE TETRAHYDRATE [Concomitant]
     Route: 048
     Dates: start: 20080930, end: 20081112
  11. HYDROMORPHONE HCL [Concomitant]
     Route: 048
     Dates: start: 20081001, end: 20081112

REACTIONS (2)
  - CARDIOPULMONARY FAILURE [None]
  - VOMITING [None]
